FAERS Safety Report 6647699-7 (Version None)
Quarter: 2010Q1

REPORT INFORMATION
  Report Type: 
  Country: None (occurrence: None)
  Receive Date: 20100323
  Receipt Date: 20100312
  Transmission Date: 20100710
  Serious: Yes (Death, Hospitalization, Other)
  Sender: FDA-Public Use
  Company Number: ES-BRISTOL-MYERS SQUIBB COMPANY-15018229

PATIENT
  Age: 48 Year
  Sex: Female

DRUGS (24)
  1. IXABEPILONE [Suspect]
     Indication: BREAST CANCER
     Dosage: DOSE REDUCED TO 30MG/M2.
  2. CYCLOPHOSPHAMIDE [Suspect]
     Indication: BREAST CANCER
  3. CARBOPLATIN [Suspect]
     Indication: BREAST CANCER
  4. PACLITAXEL [Suspect]
     Indication: BREAST CANCER
  5. DOXORUBICIN HCL [Suspect]
     Indication: BREAST CANCER
  6. FLUOROURACIL [Suspect]
     Indication: BREAST CANCER
  7. EPIRUBICIN [Suspect]
     Indication: BREAST CANCER
  8. THIOTEPA [Suspect]
     Indication: BREAST CANCER
  9. NAVELBINE [Suspect]
     Indication: BREAST CANCER
  10. CAPECITABINE [Suspect]
     Indication: BREAST CANCER
  11. TRASTUZUMAB [Suspect]
     Indication: BREAST CANCER
  12. DOCETAXEL [Suspect]
     Indication: BREAST CANCER
  13. VINORELBINE [Suspect]
     Indication: BREAST CANCER
  14. GEMCITABINE HCL [Suspect]
     Indication: BREAST CANCER
  15. IRINOTECAN HCL [Suspect]
     Indication: BREAST CANCER
  16. BEVACIZUMAB [Suspect]
     Indication: BREAST CANCER
  17. LAPATINIB [Suspect]
     Indication: BREAST CANCER
  18. ZOLEDRONIC ACID [Suspect]
     Indication: BREAST CANCER
  19. METHOTREXATE [Suspect]
     Indication: BREAST CANCER
  20. TAMOXIFEN CITRATE [Suspect]
     Indication: BREAST CANCER
  21. LETROZOLE [Suspect]
     Indication: BREAST CANCER
  22. EXEMESTANE [Suspect]
  23. FULVESTRANT [Suspect]
     Indication: BREAST CANCER
  24. PEGFILGRASTIM [Concomitant]
     Indication: PREMEDICATION

REACTIONS (2)
  - MALIGNANT NEOPLASM PROGRESSION [None]
  - NEUROPATHY PERIPHERAL [None]
